FAERS Safety Report 8343698-8 (Version None)
Quarter: 2012Q2

REPORT INFORMATION
  Report Type: 
  Country: None (occurrence: None)
  Receive Date: 20120508
  Receipt Date: 20120424
  Transmission Date: 20120825
  Serious: Yes (Death, Life-Threatening, Other)
  Sender: FDA-Public Use
  Company Number: GB-RANBAXY-2012R1-55952

PATIENT
  Age: 51 Year
  Sex: Male

DRUGS (1)
  1. AMOXICILLIN AND CLAVULANATE POTASSIUM [Suspect]
     Indication: SURGERY
     Dosage: UNK
     Route: 042
     Dates: start: 20120411, end: 20120411

REACTIONS (1)
  - ANAPHYLACTIC REACTION [None]
